FAERS Safety Report 5025263-3 (Version None)
Quarter: 2006Q2

REPORT INFORMATION
  Report Type: 
  Country: None (occurrence: None)
  Receive Date: 20060608
  Receipt Date: 20060608
  Transmission Date: 20061013
  Serious: Yes (Life-Threatening, Hospitalization, Disabling)
  Sender: FDA-Public Use
  Company Number: None

PATIENT
  Sex: Male
  Weight: 72 kg

DRUGS (7)
  1. TRILEPTAL [Suspect]
     Indication: CONVULSION
     Dosage: 600MG   TWICE DAILY   PO
     Route: 048
  2. SYNTHROID [Concomitant]
  3. VYTORIN [Concomitant]
  4. MULTI-VITAMIN [Concomitant]
  5. TYLENOL (CAPLET) [Concomitant]
  6. FOLIC ACID [Concomitant]
  7. NASONE [Concomitant]

REACTIONS (4)
  - AGRANULOCYTOSIS [None]
  - BRONCHITIS [None]
  - MALAISE [None]
  - PHARYNGOLARYNGEAL PAIN [None]
